FAERS Safety Report 25341268 (Version 1)
Quarter: 2025Q2

REPORT INFORMATION
  Report Type: Other
  Country: GB (occurrence: GB)
  Receive Date: 20250521
  Receipt Date: 20250521
  Transmission Date: 20250717
  Serious: Yes (Hospitalization, Other)
  Sender: ALVOGEN
  Company Number: GB-ALVOGEN-2025097983

PATIENT
  Sex: Male

DRUGS (9)
  1. PREGABALIN [Suspect]
     Active Substance: PREGABALIN
     Indication: Drug abuse
  2. FENTANYL [Suspect]
     Active Substance: FENTANYL
     Indication: Product used for unknown indication
  3. DIAZEPAM [Suspect]
     Active Substance: DIAZEPAM
     Indication: Drug abuse
  4. MORPHINE [Suspect]
     Active Substance: MORPHINE
     Indication: Product used for unknown indication
  5. CODEINE [Suspect]
     Active Substance: CODEINE
     Indication: Product used for unknown indication
  6. METHADONE [Suspect]
     Active Substance: METHADONE HYDROCHLORIDE
     Indication: Depression
  7. MIRTAZAPINE [Suspect]
     Active Substance: MIRTAZAPINE
     Indication: Depression
  8. COCAINE [Suspect]
     Active Substance: COCAINE
     Indication: Product used for unknown indication
  9. LAMOTRIGINE [Concomitant]
     Active Substance: LAMOTRIGINE
     Indication: Depression

REACTIONS (14)
  - Respiratory failure [Unknown]
  - Pulmonary hypertension [Unknown]
  - Ascites [Unknown]
  - Pericardial effusion [Unknown]
  - Pulmonary congestion [Unknown]
  - Atelectasis [Unknown]
  - Pleural effusion [Unknown]
  - Ejection fraction decreased [Unknown]
  - Fall [Unknown]
  - False positive investigation result [Unknown]
  - Pneumonia [Unknown]
  - Depressed level of consciousness [Unknown]
  - Drug abuse [Unknown]
  - Overdose [Unknown]
